FAERS Safety Report 5104410-9 (Version None)
Quarter: 2006Q3

REPORT INFORMATION
  Report Type: 
  Country: None (occurrence: None)
  Receive Date: 20060908
  Receipt Date: 20060908
  Transmission Date: 20061208
  Serious: Yes (Other)
  Sender: FDA-Public Use
  Company Number: None

PATIENT
  Age: 38 Year
  Sex: Female
  Weight: 81.6475 kg

DRUGS (15)
  1. AMOXICILLIN [Suspect]
     Indication: SINUSITIS
     Dosage: 1-3 A DAY 6 MONTHS A YEAR PO [6 TO 8 MO FOR 5 YEARS]
     Route: 048
     Dates: start: 19880801, end: 19971230
  2. PENICILLIN [Suspect]
     Indication: SINUSITIS
  3. ERYTHROMYCIN [Suspect]
     Indication: EAR INFECTION
     Dosage: 5 YEARS
  4. VITAMIN B COMPLEX CAP [Concomitant]
  5. ACIDAPHILLUS [Concomitant]
  6. DYFLUCAN [Concomitant]
  7. NYSTATIN [Concomitant]
  8. KETOCONAZOLE [Concomitant]
  9. CEMET [Concomitant]
  10. UNTRA [Concomitant]
  11. INFLAM X [Concomitant]
  12. NEUROREPLETE [Concomitant]
  13. ASCORBIC ACID [Concomitant]
  14. OMEGA 3 [Concomitant]
  15. SIRGERY NEBULIZER [Concomitant]

REACTIONS (28)
  - ABSCESS [None]
  - AGGRESSION [None]
  - ANXIETY [None]
  - BEDRIDDEN [None]
  - CANDIDIASIS [None]
  - CHRONIC FATIGUE SYNDROME [None]
  - CLAUSTROPHOBIA [None]
  - EAR PAIN [None]
  - ECONOMIC PROBLEM [None]
  - FACIAL PAIN [None]
  - FATIGUE [None]
  - FEMALE SEXUAL DYSFUNCTION [None]
  - HEADACHE [None]
  - IMMUNE SYSTEM DISORDER [None]
  - INFECTION [None]
  - LIBIDO DECREASED [None]
  - MALAISE [None]
  - METAL POISONING [None]
  - NAUSEA [None]
  - PAIN [None]
  - POLYP [None]
  - PYREXIA [None]
  - SINUSITIS [None]
  - SOCIAL AVOIDANT BEHAVIOUR [None]
  - SOCIAL PHOBIA [None]
  - SOMNOLENCE [None]
  - TOOTH REPAIR [None]
  - VOMITING [None]
